FAERS Safety Report 6014833-1 (Version None)
Quarter: 2008Q4

REPORT INFORMATION
  Report Type: 
  Country: None (occurrence: None)
  Receive Date: 20081219
  Receipt Date: 20081216
  Transmission Date: 20090506
  Serious: Yes (Other)
  Sender: FDA-Public Use
  Company Number: US-WYE-H07261508

PATIENT
  Sex: Male
  Weight: 66.28 kg

DRUGS (4)
  1. TORISEL [Suspect]
     Indication: RENAL CELL CARCINOMA
     Route: 042
     Dates: start: 20071201, end: 20081001
  2. VICODIN [Concomitant]
     Indication: PAIN
     Dosage: AS NEEDED
  3. IBUPROFEN [Concomitant]
     Indication: PAIN
     Dosage: AS NEEDED
  4. MULTI-VITAMINS [Concomitant]

REACTIONS (5)
  - BACK PAIN [None]
  - BONE PAIN [None]
  - CHEST PAIN [None]
  - CONDITION AGGRAVATED [None]
  - DISEASE PROGRESSION [None]
